FAERS Safety Report 5871463-X (Version None)
Quarter: 2008Q3

REPORT INFORMATION
  Report Type: 
  Country: None (occurrence: None)
  Receive Date: 20080905
  Receipt Date: 20080128
  Transmission Date: 20090109
  Serious: No
  Sender: FDA-Public Use
  Company Number: A0707222A

PATIENT
  Age: 42 Year
  Sex: Female

DRUGS (1)
  1. REQUIP [Suspect]
     Indication: PRE-EXISTING DISEASE
     Route: 065

REACTIONS (2)
  - CONDITION AGGRAVATED [None]
  - ILL-DEFINED DISORDER [None]
